FAERS Safety Report 9751571 (Version 1)
Quarter: 2013Q4

REPORT INFORMATION
  Report Type: Spontaneous
  Country: BR (occurrence: BR)
  Receive Date: 20131212
  Receipt Date: 20131212
  Transmission Date: 20140711
  Serious: Yes (Hospitalization, Other)
  Sender: FDA-Public Use
  Company Number: PHHY2013BR142531

PATIENT
  Age: 33 Year
  Sex: Male

DRUGS (13)
  1. AZATHIOPRINE [Suspect]
     Indication: PEMPHIGUS
     Dosage: 150 MG, DAILY
  2. METHYLPREDNISOLONE [Suspect]
     Indication: PEMPHIGUS
     Dosage: 1 G, DAILY
     Route: 042
  3. MYCOPHENOLATE MOFETIL [Suspect]
     Indication: PEMPHIGUS
     Dosage: 3 G, DAILY
  4. DEXAMETHASONE [Suspect]
     Indication: PEMPHIGUS
     Dosage: 100 MG, DAILY
  5. PREDNISOLONE [Suspect]
     Indication: PEMPHIGUS
     Dosage: 1 MG PER KG DAILY
  6. PREDNISOLONE [Suspect]
     Dosage: 1.5 MG PER KG DAILY
  7. PREDNISOLONE [Suspect]
     Dosage: 2 MG PER KG DAILY
  8. PREDNISOLONE [Suspect]
     Dosage: 5 MG, DAILY
  9. PREDNISOLONE [Suspect]
     Dosage: 20 MG, DAILY
  10. CYCLOPHOSPHAMIDE [Suspect]
     Indication: PEMPHIGUS
     Dosage: 250 MG, DAILY
  11. IMMUNOGLOBULINS [Suspect]
     Indication: PEMPHIGUS
     Dosage: 400 MG PER KG PER CYCLE
  12. SULFONE [Suspect]
     Dosage: 100 MG, DAILY
  13. RITUXIMAB [Concomitant]
     Indication: PEMPHIGUS
     Dosage: 375 MG/M2, UNK

REACTIONS (11)
  - Pemphigus [Unknown]
  - Kaposi^s varicelliform eruption [Unknown]
  - General physical health deterioration [Unknown]
  - Thrombocytopenia [Recovering/Resolving]
  - Dermatitis bullous [Unknown]
  - Skin lesion [Unknown]
  - Blister [Unknown]
  - Pain [Unknown]
  - Odynophagia [Unknown]
  - Drug resistance [Unknown]
  - Drug ineffective [Unknown]
